FAERS Safety Report 4962287-6 (Version None)
Quarter: 2006Q2

REPORT INFORMATION
  Report Type: 
  Country: None (occurrence: None)
  Receive Date: 20060404
  Receipt Date: 20050616
  Transmission Date: 20061013
  Serious: Yes (Other)
  Sender: FDA-Public Use
  Company Number: US-BRISTOL-MYERS SQUIBB COMPANY-13006598

PATIENT
  Age: 70 Year
  Sex: Male
  Weight: 73 kg

DRUGS (4)
  1. HYDREA [Suspect]
  2. NIFEDIPINE [Concomitant]
  3. QUINAPRIL [Concomitant]
  4. ASPIRIN [Concomitant]

REACTIONS (1)
  - WHITE BLOOD CELL COUNT DECREASED [None]
